FAERS Safety Report 8762188 (Version 1)
Quarter: 2012Q4

REPORT INFORMATION
  Report Type: 
  Country: US (occurrence: US)
  Receive Date: 20120830
  Receipt Date: 20120830
  Transmission Date: 20130627
  Serious: Yes (Other)
  Sender: FDA-Public Use
  Company Number: US-PFIZER INC-2012207548

PATIENT
  Sex: Female

DRUGS (2)
  1. CLEOCIN [Suspect]
     Dosage: UNK
  2. ZITHROMAX [Suspect]
     Dosage: UNK

REACTIONS (4)
  - Respiratory tract infection [Unknown]
  - Urinary tract infection [Unknown]
  - Headache [Unknown]
  - Rhinalgia [Unknown]
